FAERS Safety Report 10791803 (Version 8)
Quarter: 2015Q3

REPORT INFORMATION
  Report Type: Spontaneous
  Country: GB (occurrence: GB)
  Receive Date: 20150213
  Receipt Date: 20150810
  Transmission Date: 20151125
  Serious: Yes (Other)
  Sender: FDA-Public Use
  Company Number: GB-ROCHE-1536844

PATIENT
  Sex: Female

DRUGS (2)
  1. HERCEPTIN [Suspect]
     Active Substance: TRASTUZUMAB
     Dosage: CYCLE 15
     Route: 058
     Dates: start: 20150601
  2. HERCEPTIN [Suspect]
     Active Substance: TRASTUZUMAB
     Indication: PRODUCT USED FOR UNKNOWN INDICATION
     Dosage: CYCLE 10
     Route: 058

REACTIONS (27)
  - Tinnitus [Unknown]
  - Dyspnoea exertional [Unknown]
  - Incision site complication [Unknown]
  - Onychoclasis [Unknown]
  - Asthenia [Unknown]
  - Muscle spasms [Unknown]
  - Paraesthesia [Unknown]
  - Stress urinary incontinence [Unknown]
  - Mass [Unknown]
  - Rhinorrhoea [Unknown]
  - Nasopharyngitis [Recovering/Resolving]
  - Pain in extremity [Unknown]
  - Malaise [Unknown]
  - Lethargy [Unknown]
  - Hyperhidrosis [Unknown]
  - Procedural pain [Unknown]
  - Arthralgia [Unknown]
  - Dizziness [Unknown]
  - Epistaxis [Unknown]
  - Insomnia [Unknown]
  - Nausea [Unknown]
  - Cystitis [Recovered/Resolved]
  - Breast swelling [Unknown]
  - Breast pain [Unknown]
  - Neuropathy peripheral [Recovering/Resolving]
  - Headache [Unknown]
  - Swelling [Unknown]
